FAERS Safety Report 7019605-7 (Version None)
Quarter: 2010Q3

REPORT INFORMATION
  Report Type: 
  Country: None (occurrence: None)
  Receive Date: 20100928
  Receipt Date: 20100928
  Transmission Date: 20110219
  Serious: Yes (Other)
  Sender: FDA-Public Use
  Company Number: None

PATIENT
  Age: 43 Year
  Sex: Female
  Weight: 61.2356 kg

DRUGS (1)
  1. ZYRTEC [Suspect]
     Indication: HYPERSENSITIVITY
     Dosage: 10MG ONCE DAILY
     Dates: start: 20070101, end: 20100101

REACTIONS (4)
  - FEELING ABNORMAL [None]
  - INSOMNIA [None]
  - PRURITUS [None]
  - WITHDRAWAL SYNDROME [None]
